FAERS Safety Report 19478388 (Version 1)
Quarter: 2021Q2

REPORT INFORMATION
  Report Type: Spontaneous
  Country: US (occurrence: US)
  Receive Date: 20210630
  Receipt Date: 20210630
  Transmission Date: 20210717
  Serious: No
  Sender: FDA-Public Use
  Company Number: US-PFIZER INC-2019200116

PATIENT
  Age: 41 Year
  Sex: Female
  Weight: 127.01 kg

DRUGS (1)
  1. LYRICA [Suspect]
     Active Substance: PREGABALIN
     Indication: NEURALGIA
     Dosage: 150 MG, 3X/DAY (1 PO TID)
     Route: 048

REACTIONS (2)
  - Memory impairment [Unknown]
  - Feeling abnormal [Unknown]
